FAERS Safety Report 25412238 (Version 2)
Quarter: 2025Q3

REPORT INFORMATION
  Report Type: Spontaneous
  Country: US (occurrence: US)
  Receive Date: 20250609
  Receipt Date: 20250702
  Transmission Date: 20251020
  Serious: No
  Sender: PFIZER
  Company Number: US-PFIZER INC-202500114133

PATIENT
  Age: 7 Year
  Sex: Female
  Weight: 29.6 kg

DRUGS (5)
  1. XELJANZ [Suspect]
     Active Substance: TOFACITINIB CITRATE
     Indication: Juvenile idiopathic arthritis
     Dosage: 3.2 ML, 2X/DAY (1 MG/ML ORAL SOLUTION 240 ML)
     Route: 048
     Dates: start: 20220218
  2. CELEBREX [Concomitant]
     Active Substance: CELECOXIB
     Indication: Arthritis
     Dosage: 50 MG, DAILY (AS NEEDED)
  3. VITAMIN D3 [Concomitant]
     Active Substance: CHOLECALCIFEROL
  4. MELATONIN [Concomitant]
     Active Substance: MELATONIN
  5. VIT D [VITAMIN D NOS] [Concomitant]
     Indication: Hypovitaminosis
     Dosage: 50 UG, DAILY

REACTIONS (4)
  - Headache [Recovered/Resolved]
  - Skin infection [Recovered/Resolved]
  - Nail infection [Recovered/Resolved]
  - Puncture site infection [Recovered/Resolved]

NARRATIVE: CASE EVENT DATE: 20250514
